FAERS Safety Report 10357137 (Version 1)
Quarter: 2014Q3

REPORT INFORMATION
  Report Type: Spontaneous
  Country: KR (occurrence: KR)
  Receive Date: 20140801
  Receipt Date: 20140801
  Transmission Date: 20150326
  Serious: Yes (Other)
  Sender: FDA-Public Use
  Company Number: PHHY2014KR093709

PATIENT
  Age: 57 Year
  Sex: Female

DRUGS (2)
  1. CEFEPIME [Suspect]
     Active Substance: CEFEPIME\CEFEPIME HYDROCHLORIDE
     Indication: LUNG ABSCESS
     Route: 042
  2. METHYLPREDNISOLONE [Concomitant]
     Active Substance: METHYLPREDNISOLONE
     Indication: VISUAL IMPAIRMENT
     Dosage: 1 G, UNK

REACTIONS (7)
  - Cerebral infarction [Unknown]
  - Cerebral atrophy [Unknown]
  - Unresponsive to stimuli [Unknown]
  - Staring [Unknown]
  - Abnormal behaviour [Unknown]
  - Mental impairment [Recovered/Resolved]
  - Status epilepticus [Unknown]
